FAERS Safety Report 16946302 (Version 1)
Quarter: 2019Q4

REPORT INFORMATION
  Report Type: Spontaneous
  Country: US (occurrence: US)
  Receive Date: 20191018
  Receipt Date: 20191018
  Transmission Date: 20200122
  Serious: Yes (Other)
  Sender: FDA-Public Use
  Company Number: None

PATIENT
  Age: 31 Year
  Sex: Female
  Weight: 65.25 kg

DRUGS (3)
  1. OMEGA 3 [Concomitant]
     Active Substance: OMEGA-3 FATTY ACIDS
  2. KRATOM- USED SUPER GREEN, GREEN BALI, RED MAGNEA DA [Suspect]
     Active Substance: HERBALS\MITRAGYNINE
     Indication: PAIN
     Dates: start: 20181231, end: 20191009
  3. KRATOM- USED SUPER GREEN, GREEN BALI, RED MAGNEA DA [Suspect]
     Active Substance: HERBALS\MITRAGYNINE
     Indication: ANXIETY
     Dates: start: 20181231, end: 20191009

REACTIONS (11)
  - Weight increased [None]
  - Diarrhoea [None]
  - Stress [None]
  - Insomnia [None]
  - Rash [None]
  - Influenza [None]
  - Nausea [None]
  - Depression [None]
  - Weight decreased [None]
  - Decreased appetite [None]
  - Anxiety [None]

NARRATIVE: CASE EVENT DATE: 20191010
